FAERS Safety Report 9220956 (Version 4)
Quarter: 2013Q2

REPORT INFORMATION
  Report Type: Spontaneous
  Country: JP (occurrence: JP)
  Receive Date: 20130409
  Receipt Date: 20130624
  Transmission Date: 20140414
  Serious: Yes (Life-Threatening)
  Sender: FDA-Public Use
  Company Number: JP-GLAXOSMITHKLINE-B0881225A

PATIENT
  Age: 71 Year
  Sex: Female
  Weight: 70 kg

DRUGS (12)
  1. ZANTAC [Suspect]
     Indication: ALLERGY PROPHYLAXIS
     Dosage: 50MG PER DAY
     Route: 042
     Dates: start: 201110, end: 201209
  2. KYTRIL [Suspect]
     Indication: PROPHYLAXIS
     Dosage: 3ML PER DAY
     Route: 042
     Dates: start: 201110, end: 201209
  3. POLARAMINE [Suspect]
     Indication: PROPHYLAXIS
     Dosage: 5MG PER DAY
     Route: 042
     Dates: start: 201110, end: 201209
  4. DEXART [Suspect]
     Indication: PROPHYLAXIS
     Dosage: 6.6MG PER DAY
     Route: 042
     Dates: start: 201110, end: 201209
  5. PACLITAXEL [Concomitant]
  6. NEU-UP [Concomitant]
  7. LYRICA [Concomitant]
  8. DIOVAN [Concomitant]
  9. FLUITRAN [Concomitant]
  10. FERO-GRADUMET [Concomitant]
  11. MAGLAX [Concomitant]
  12. CARBOPLATIN [Concomitant]

REACTIONS (21)
  - Anaphylactic shock [Recovered/Resolved]
  - Gaze palsy [Recovered/Resolved]
  - Heart rate increased [Recovered/Resolved]
  - Nausea [Recovered/Resolved]
  - Flushing [Recovered/Resolved]
  - Vomiting [Recovered/Resolved]
  - Musculoskeletal stiffness [Recovered/Resolved]
  - Urinary incontinence [Recovered/Resolved]
  - Faecal incontinence [Recovered/Resolved]
  - Loss of consciousness [Recovered/Resolved]
  - Atrioventricular block complete [Recovered/Resolved]
  - Pulse absent [Recovered/Resolved]
  - Blood pressure immeasurable [Recovered/Resolved]
  - Shock [Recovered/Resolved]
  - Circulatory collapse [Recovered/Resolved]
  - Unresponsive to stimuli [Recovered/Resolved]
  - Diarrhoea [Recovered/Resolved]
  - Pyrexia [Recovered/Resolved]
  - Heart rate decreased [Recovered/Resolved]
  - Oxygen saturation decreased [Recovered/Resolved]
  - Depressed level of consciousness [Recovered/Resolved]
